FAERS Safety Report 9337515 (Version 2)
Quarter: 2013Q2

REPORT INFORMATION
  Report Type: Report from Study
  Country: US (occurrence: US)
  Receive Date: 20130607
  Receipt Date: 20130619
  Transmission Date: 20140414
  Serious: Yes (Other)
  Sender: FDA-Public Use
  Company Number: US-TEVA-410266USA

PATIENT
  Age: 24 Year
  Sex: Female

DRUGS (3)
  1. CLARAVIS [Suspect]
     Dosage: 80 MILLIGRAM DAILY;
     Route: 048
     Dates: start: 20121126, end: 20130326
  2. ORAL CONTRACEPTIVE NOS [Concomitant]
  3. ACZONE GEL [Concomitant]
     Indication: ACNE
     Dosage: 2X/DAY
     Dates: start: 201211

REACTIONS (1)
  - Unintended pregnancy [Recovered/Resolved]
